FAERS Safety Report 8887566 (Version 1)
Quarter: 2012Q4

REPORT INFORMATION
  Report Type: Spontaneous
  Country: US (occurrence: None)
  Receive Date: 20121101
  Receipt Date: 20121101
  Transmission Date: 20130627
  Serious: Yes (Life-Threatening)
  Sender: FDA-Public Use
  Company Number: None

PATIENT
  Age: 63 Year
  Sex: Male
  Weight: 77.11 kg

DRUGS (1)
  1. XARELTO [Suspect]
     Dosage: 1 tablet  per day  po
     Route: 048
     Dates: start: 20120520, end: 20120520

REACTIONS (3)
  - Haemorrhage [None]
  - Urticaria [None]
  - Disorientation [None]
